FAERS Safety Report 23444234 (Version 4)
Quarter: 2024Q1

REPORT INFORMATION
  Report Type: Spontaneous
  Country: US (occurrence: US)
  Receive Date: 20240125
  Receipt Date: 20240321
  Transmission Date: 20240409
  Serious: Yes (Other)
  Sender: FDA-Public Use
  Company Number: US-PFIZER INC-PV202400010036

PATIENT
  Age: 72 Year
  Sex: Female
  Weight: 74.376 kg

DRUGS (2)
  1. PREMARIN [Suspect]
     Active Substance: ESTROGENS, CONJUGATED
     Dosage: UNK, ALTERNATE DAY
  2. PREMARIN [Suspect]
     Active Substance: ESTROGENS, CONJUGATED
     Dosage: UNK, DAILY

REACTIONS (4)
  - Foot fracture [Recovering/Resolving]
  - Rheumatoid arthritis [Unknown]
  - Agitation [Unknown]
  - Intentional product misuse [Unknown]
